FAERS Safety Report 15121581 (Version 1)
Quarter: 2018Q3

REPORT INFORMATION
  Report Type: Spontaneous
  Country: US (occurrence: US)
  Receive Date: 20180613
  Receipt Date: 20180613
  Transmission Date: 20181010
  Serious: Yes (Other)
  Sender: FDA-Public Use
  Company Number: None

PATIENT
  Age: 46 Year
  Sex: Female
  Weight: 63 kg

DRUGS (2)
  1. SODIUM CHLORIDE 0.9% 500ML [Concomitant]
     Dates: start: 20180607, end: 20180607
  2. GAMUNEX?C [Suspect]
     Active Substance: HUMAN IMMUNOGLOBULIN G
     Indication: IMMUNODEFICIENCY COMMON VARIABLE
     Route: 042
     Dates: start: 20180607, end: 20180607

REACTIONS (6)
  - Urticaria [None]
  - Chest discomfort [None]
  - Lethargy [None]
  - Muscle tightness [None]
  - Vision blurred [None]
  - Musculoskeletal stiffness [None]

NARRATIVE: CASE EVENT DATE: 20180607
